FAERS Safety Report 23658327 (Version 1)
Quarter: 2024Q1

REPORT INFORMATION
  Report Type: Spontaneous
  Country: US (occurrence: None)
  Receive Date: 20240321
  Receipt Date: 20240321
  Transmission Date: 20240410
  Serious: Yes (Hospitalization)
  Sender: FDA-Public Use
  Company Number: None

PATIENT
  Sex: Female

DRUGS (3)
  1. AMBRISENTAN [Suspect]
     Active Substance: AMBRISENTAN
     Indication: Pulmonary arterial hypertension
     Dosage: 10MG ONCE DAILY PO
     Route: 048
     Dates: start: 201907
  2. TYVASO DPI MAINT KIT PWD [Concomitant]
  3. TADALAFIL [Concomitant]

REACTIONS (1)
  - Pneumonia [None]
